FAERS Safety Report 13324831 (Version 4)
Quarter: 2018Q4

REPORT INFORMATION
  Report Type: Spontaneous
  Country: ES (occurrence: ES)
  Receive Date: 20170310
  Receipt Date: 20181224
  Transmission Date: 20190204
  Serious: Yes (Life-Threatening, Hospitalization, Other)
  Sender: FDA-Public Use
  Company Number: ES-PFIZER INC-2017102095

PATIENT
  Age: 47 Year
  Sex: Male
  Weight: 87 kg

DRUGS (11)
  1. PROPOFOL. [Suspect]
     Active Substance: PROPOFOL
     Dosage: 60 MG, UNK
  2. VALPROIC ACID. [Suspect]
     Active Substance: VALPROIC ACID
     Indication: EPILEPSY
     Dosage: 1000 MG, UNK
  3. REMIFENTANIL [Suspect]
     Active Substance: REMIFENTANIL
     Indication: ANAESTHESIA
     Dosage: 0.025 G/KG/MIN, INFUSIONS
  4. PROPOFOL. [Suspect]
     Active Substance: PROPOFOL
     Indication: ANAESTHESIA
     Dosage: 1 MG/KG/H, INFUSION
  5. VALPROIC ACID. [Suspect]
     Active Substance: VALPROIC ACID
     Dosage: 500 MG, UNK
  6. CLOBAZAM. [Concomitant]
     Active Substance: CLOBAZAM
     Indication: ANAESTHESIA
     Dosage: 10 MG/12H
  7. OXYGEN. [Concomitant]
     Active Substance: OXYGEN
     Dosage: 3 L, PER MINUTE (THREE LITERS PER MINUTE )
     Route: 045
  8. VALPROIC ACID. [Suspect]
     Active Substance: VALPROIC ACID
     Dosage: 500 MG, UNK
  9. CISATRACURIUM. [Concomitant]
     Active Substance: CISATRACURIUM
     Dosage: 10 MG, UNK
  10. LEVETIRACETAM. [Suspect]
     Active Substance: LEVETIRACETAM
     Dosage: 1500 MG/12 H
  11. BUPIVACAINE HCL [Suspect]
     Active Substance: BUPIVACAINE HYDROCHLORIDE
     Indication: ANAESTHESIA
     Dosage: 40 ML

REACTIONS (3)
  - Hyperammonaemic encephalopathy [Recovered/Resolved]
  - Respiratory depression [Recovered/Resolved]
  - Neurological decompensation [Unknown]
